FAERS Safety Report 8522671-0 (Version None)
Quarter: 2012Q3

REPORT INFORMATION
  Report Type: 
  Country: None (occurrence: None)
  Receive Date: 20120719
  Receipt Date: 20120713
  Transmission Date: 20120928
  Serious: Yes (Congenital Anomaly)
  Sender: FDA-Public Use
  Company Number: US-GLAXOSMITHKLINE-A0931926A

PATIENT
  Sex: Female

DRUGS (2)
  1. PAXIL [Suspect]
     Indication: DEPRESSION
     Dosage: 20MG PER DAY
     Route: 064
     Dates: start: 19970601
  2. MULTI-VITAMINS [Concomitant]
     Route: 064

REACTIONS (4)
  - PATENT DUCTUS ARTERIOSUS [None]
  - HEART DISEASE CONGENITAL [None]
  - AORTIC STENOSIS [None]
  - FOETAL EXPOSURE DURING PREGNANCY [None]
